FAERS Safety Report 5026330-0 (Version None)
Quarter: 2006Q2

REPORT INFORMATION
  Report Type: 
  Country: None (occurrence: None)
  Receive Date: 20060426
  Receipt Date: 20060130
  Transmission Date: 20061013
  Serious: Yes (Other)
  Sender: FDA-Public Use
  Company Number: 2006016254

PATIENT
  Age: 37 Year
  Sex: Male
  Weight: 88.4514 kg

DRUGS (7)
  1. LYRICA [Suspect]
     Indication: BACK PAIN
     Dosage: 150 MG (50 MG,3 IN 1 D),ORAL
     Route: 048
     Dates: start: 20060130
  2. MORPHINE [Concomitant]
  3. FLEXERIL [Concomitant]
  4. WELLBUTRIN [Concomitant]
  5. ROXICODONE [Concomitant]
  6. VICODIN [Concomitant]
  7. FLOMAX ^CSL^ (TAMSULOSIN HYDROCHLORIDE) [Concomitant]

REACTIONS (2)
  - MIOSIS [None]
  - VISION BLURRED [None]
